FAERS Safety Report 18355802 (Version 1)
Quarter: 2020Q4

REPORT INFORMATION
  Report Type: Spontaneous
  Country: US (occurrence: US)
  Receive Date: 20201007
  Receipt Date: 20201007
  Transmission Date: 20210114
  Serious: Yes (Other)
  Sender: FDA-Public Use
  Company Number: None

PATIENT
  Age: 26 Year
  Sex: Male

DRUGS (8)
  1. RISPERIDAL 1MG/ML ORAL SOLUTION [Concomitant]
  2. DIASTAT ACUDIAL 10 MG [Concomitant]
  3. FELBAMATE OS 600MG/5ML [Concomitant]
  4. VITAMIN D3 1,200 UNIT LIQUID [Concomitant]
  5. VIMPAT 10MG/ML SOLUTION [Concomitant]
  6. EPIDIOLEX [Suspect]
     Active Substance: CANNABIDIOL
     Indication: LENNOX-GASTAUT SYNDROME
     Route: 048
  7. FYCOMA 0.5MG/ML SUSPENSION [Concomitant]
  8. LORAZEPAM 0.5MG [Concomitant]
     Active Substance: LORAZEPAM

REACTIONS (2)
  - Seizure [None]
  - Liquid product physical issue [None]

NARRATIVE: CASE EVENT DATE: 20201006
